FAERS Safety Report 24547901 (Version 2)
Quarter: 2024Q4

REPORT INFORMATION
  Report Type: Spontaneous
  Country: UA (occurrence: US)
  Receive Date: 20241025
  Receipt Date: 20241105
  Transmission Date: 20250115
  Serious: Yes (Hospitalization, Other)
  Sender: MERCK
  Company Number: UA-009507513-2410UKR009468

PATIENT
  Age: 66 Year
  Sex: Male
  Weight: 94 kg

DRUGS (8)
  1. PEMBROLIZUMAB [Suspect]
     Active Substance: PEMBROLIZUMAB
     Indication: Non-small cell lung cancer
     Dosage: 200 MILLIGRAM EVERY CYCLE
     Route: 042
     Dates: start: 20220127, end: 20230126
  2. SELPERCATINIB [Suspect]
     Active Substance: SELPERCATINIB
     Indication: Non-small cell lung cancer
     Dosage: 160 MILLIGRAM, BID
     Route: 048
     Dates: start: 20230629
  3. PEMETREXED [Suspect]
     Active Substance: PEMETREXED
     Indication: Non-small cell lung cancer
     Dosage: 1070 MILLIGRAM EVERY CYCLE
     Route: 042
     Dates: start: 20220127, end: 20230126
  4. CARBOPLATIN [Suspect]
     Active Substance: CARBOPLATIN
     Indication: Non-small cell lung cancer
     Dosage: 702.1 MILLIGRAM EVERY CYCLE
     Route: 042
     Dates: start: 20220127, end: 20220127
  5. CARBOPLATIN [Suspect]
     Active Substance: CARBOPLATIN
     Dosage: 735.6 MILLIGRAM; EVERY CYCLE
     Route: 042
     Dates: start: 20220217, end: 20230217
  6. CARBOPLATIN [Suspect]
     Active Substance: CARBOPLATIN
     Dosage: 689.8 MILLIGRAM; EVERY CYCLE
     Route: 042
     Dates: start: 20220310, end: 20220310
  7. CARBOPLATIN [Suspect]
     Active Substance: CARBOPLATIN
     Dosage: 750 MILLIGRAM; EVERY CYCLE
     Route: 042
     Dates: start: 20220407, end: 20220407
  8. LEVOTHYROXINE SODIUM [Concomitant]
     Active Substance: LEVOTHYROXINE SODIUM
     Dosage: UNK
     Dates: start: 20230728

REACTIONS (4)
  - Intestinal obstruction [Not Recovered/Not Resolved]
  - Malignant neoplasm progression [Unknown]
  - Hyperkalaemia [Not Recovered/Not Resolved]
  - Colitis ulcerative [Unknown]

NARRATIVE: CASE EVENT DATE: 20220530
